FAERS Safety Report 17758709 (Version 3)
Quarter: 2020Q4

REPORT INFORMATION
  Report Type: Spontaneous
  Country: CH (occurrence: CH)
  Receive Date: 20200507
  Receipt Date: 20201128
  Transmission Date: 20210113
  Serious: Yes (Other)
  Sender: FDA-Public Use
  Company Number: CH-ABBVIE-20K-151-3392070-00

PATIENT
  Age: 82 Year
  Sex: Male

DRUGS (6)
  1. KALETRA [Interacting]
     Active Substance: LOPINAVIR\RITONAVIR
     Route: 048
     Dates: start: 20200402, end: 20200407
  2. KALETRA [Suspect]
     Active Substance: LOPINAVIR\RITONAVIR
     Indication: CORONAVIRUS INFECTION
     Route: 048
     Dates: start: 20200329, end: 20200331
  3. ACTEMRA [Concomitant]
     Active Substance: TOCILIZUMAB
     Indication: PRODUCT USED FOR UNKNOWN INDICATION
     Route: 041
     Dates: start: 20200401, end: 20200402
  4. ERYTHROMYCIN. [Interacting]
     Active Substance: ERYTHROMYCIN
     Indication: CORONAVIRUS INFECTION
     Route: 042
     Dates: start: 20200406, end: 20200407
  5. PLAQUENIL [Interacting]
     Active Substance: HYDROXYCHLOROQUINE SULFATE
     Indication: PRODUCT USED FOR UNKNOWN INDICATION
     Route: 048
     Dates: start: 20200327, end: 20200329
  6. TAZOBAC [Concomitant]
     Active Substance: PIPERACILLIN SODIUM\TAZOBACTAM SODIUM
     Indication: PRODUCT USED FOR UNKNOWN INDICATION
     Dosage: 2.0GR / 0.25MG
     Dates: start: 20200402, end: 20200407

REACTIONS (4)
  - Diarrhoea [Unknown]
  - Electrocardiogram QT prolonged [Recovered/Resolved]
  - Off label use [Recovered/Resolved]
  - Drug interaction [Recovered/Resolved]

NARRATIVE: CASE EVENT DATE: 202003
